FAERS Safety Report 7904230-3 (Version None)
Quarter: 2011Q4

REPORT INFORMATION
  Report Type: 
  Country: None (occurrence: None)
  Receive Date: 20111109
  Receipt Date: 20111107
  Transmission Date: 20120403
  Serious: No
  Sender: FDA-Public Use
  Company Number: US-B.I. PHARMACEUTICALS,INC./RIDGEFIELD-2011-BP-25776BP

PATIENT
  Sex: Female

DRUGS (5)
  1. ALBUTEROL [Concomitant]
     Indication: ASTHMA
     Route: 055
  2. SPIRIVA [Suspect]
     Indication: ASTHMA
     Dosage: 18 MCG
     Route: 055
     Dates: start: 20111027, end: 20111104
  3. PREDNISONE [Concomitant]
     Indication: PNEUMONIA
     Route: 048
  4. SPIRIVA [Suspect]
     Indication: PNEUMONIA
  5. BP MEDICATION [Concomitant]
     Indication: HYPERTENSION
     Route: 048

REACTIONS (4)
  - RHINORRHOEA [None]
  - OCULAR HYPERAEMIA [None]
  - EYE DISCHARGE [None]
  - NASAL DISCHARGE DISCOLOURATION [None]
